FAERS Safety Report 7473386-1 (Version None)
Quarter: 2011Q2

REPORT INFORMATION
  Report Type: 
  Country: None (occurrence: None)
  Receive Date: 20110511
  Receipt Date: 20110427
  Transmission Date: 20111010
  Serious: Yes (Other)
  Sender: FDA-Public Use
  Company Number: CA-CELGENEUS-028-C5013-06030313

PATIENT
  Sex: Male
  Weight: 100.5 kg

DRUGS (6)
  1. FENTANYL [Concomitant]
     Dosage: UNKNOWN
  2. MELPHALAN HYDROCHLORIDE [Concomitant]
     Dosage: UNKNOWN
  3. EPREX [Concomitant]
     Dosage: 40, 000 UNITS
     Route: 065
     Dates: start: 20040615, end: 20040909
  4. WARFARIN [Concomitant]
     Dosage: UNKNOWN
  5. LENALIDOMIDE [Suspect]
     Indication: MULTIPLE MYELOMA
     Dosage: 25 MILLIGRAM
     Route: 048
     Dates: start: 20040617
  6. EPREX [Concomitant]
     Dosage: 60, 000 UNITS
     Route: 065
     Dates: end: 20041230

REACTIONS (1)
  - OESOPHAGEAL ADENOCARCINOMA [None]
